FAERS Safety Report 24824439 (Version 1)
Quarter: 2025Q1

REPORT INFORMATION
  Report Type: Spontaneous
  Country: US (occurrence: None)
  Receive Date: 20250108
  Receipt Date: 20250108
  Transmission Date: 20250409
  Serious: Yes (Death)
  Sender: FDA-CTU
  Company Number: None

PATIENT
  Age: 83 Year
  Sex: Female

DRUGS (1)
  1. ERIVEDGE [Suspect]
     Active Substance: VISMODEGIB
     Indication: Basal cell carcinoma
     Dosage: OTHER QUANTITY : 1;?FREQUENCY : DAILY;?
     Route: 048
     Dates: start: 20240509, end: 20241015

REACTIONS (1)
  - Death [None]

NARRATIVE: CASE EVENT DATE: 20241015
